FAERS Safety Report 23192042 (Version 2)
Quarter: 2025Q4

REPORT INFORMATION
  Report Type: Other
  Country: US (occurrence: US)
  Receive Date: 20231116
  Receipt Date: 20251031
  Transmission Date: 20260117
  Serious: No
  Sender: TRAVERE THERAPEUTICS
  Company Number: US-TRAVERE-2023TVT00652

PATIENT
  Age: 25 Year
  Sex: Male

DRUGS (2)
  1. FILSPARI [Suspect]
     Active Substance: SPARSENTAN
     Indication: IgA nephropathy
     Route: 048
     Dates: start: 20231020
  2. FILSPARI [Suspect]
     Active Substance: SPARSENTAN
     Route: 048

REACTIONS (1)
  - Head discomfort [Recovering/Resolving]
